FAERS Safety Report 6288660-4 (Version None)
Quarter: 2009Q3

REPORT INFORMATION
  Report Type: 
  Country: None (occurrence: None)
  Receive Date: 20090729
  Receipt Date: 20070501
  Transmission Date: 20100115
  Serious: Yes (Hospitalization, Other)
  Sender: FDA-Public Use
  Company Number: US-ASTRAZENECA-2006UW23364

PATIENT
  Age: 486 Month
  Sex: Female
  Weight: 93.6 kg

DRUGS (31)
  1. SEROQUEL [Suspect]
     Indication: SLEEP DISORDER
     Route: 048
     Dates: start: 20000101
  2. SEROQUEL [Suspect]
     Indication: MENTAL DISORDER
     Route: 048
     Dates: start: 20000101
  3. SEROQUEL [Suspect]
     Dosage: 25MG-300MG
     Route: 048
  4. SEROQUEL [Suspect]
     Dosage: 25MG-300MG
     Route: 048
  5. HALDOL [Concomitant]
     Dates: start: 19800101, end: 20020101
  6. NAVANE [Concomitant]
  7. RISPERDAL [Concomitant]
     Route: 048
     Dates: start: 19950101
  8. THORAZINE [Concomitant]
     Dates: start: 19800101
  9. ZYPREXA [Concomitant]
     Dates: start: 20020501, end: 20060801
  10. LOTREL [Concomitant]
  11. ABILIFY [Concomitant]
  12. GLIPIZIDE [Concomitant]
  13. FLUCONAZOLE [Concomitant]
  14. OLANZAPINE [Concomitant]
  15. RAMIPRIL [Concomitant]
  16. CLOTRIMAZOLE [Concomitant]
  17. INSULIN HUMAN [Concomitant]
  18. POTASSIUM CHLORIDE [Concomitant]
  19. ATIVAN [Concomitant]
  20. PRINZIDE [Concomitant]
  21. AMOXICILLIN [Concomitant]
  22. ZESTRIL [Concomitant]
  23. CLARITIN-D [Concomitant]
  24. LITHIUM CARBONATE [Concomitant]
  25. DEPAKOTE [Concomitant]
  26. FAZACLO ODT [Concomitant]
  27. AMBIEN [Concomitant]
  28. TYLENOL [Concomitant]
  29. MOTRIN [Concomitant]
  30. ASPIRIN [Concomitant]
  31. GEODON [Concomitant]

REACTIONS (3)
  - BIPOLAR DISORDER [None]
  - PSYCHOTIC DISORDER [None]
  - TYPE 2 DIABETES MELLITUS [None]
